FAERS Safety Report 7455672-4 (Version None)
Quarter: 2011Q2

REPORT INFORMATION
  Report Type: 
  Country: None (occurrence: None)
  Receive Date: 20110503
  Receipt Date: 20110429
  Transmission Date: 20111010
  Serious: Yes (Death)
  Sender: FDA-Public Use
  Company Number: DE-ROCHE-774441

PATIENT
  Sex: Male
  Weight: 76 kg

DRUGS (3)
  1. BEVACIZUMAB [Suspect]
     Dosage: DOSE: 10
     Route: 065
     Dates: start: 20100614, end: 20110103
  2. CARBOPLATIN [Concomitant]
     Dates: start: 20100614, end: 20110103
  3. TAXOL [Concomitant]
     Dates: start: 20100614, end: 20110103

REACTIONS (2)
  - NO THERAPEUTIC RESPONSE [None]
  - NEOPLASM MALIGNANT [None]
